FAERS Safety Report 16725847 (Version 1)
Quarter: 2019Q3

REPORT INFORMATION
  Report Type: Spontaneous
  Country: GB (occurrence: GB)
  Receive Date: 20190821
  Receipt Date: 20190821
  Transmission Date: 20191005
  Serious: Yes (Hospitalization)
  Sender: FDA-Public Use
  Company Number: PHHY2019GB191919

PATIENT
  Age: 95 Year
  Sex: Female
  Weight: 77.56 kg

DRUGS (8)
  1. YELLOX [Suspect]
     Active Substance: BROMFENAC SODIUM
     Indication: CYSTOID MACULAR OEDEMA
     Dosage: 1 DROP IN EACH EYE.
     Route: 047
     Dates: start: 20190523, end: 20190619
  2. CLARITHROMYCIN CITRATE [Concomitant]
     Active Substance: CLARITHROMYCIN CITRATE
     Indication: PRODUCT USED FOR UNKNOWN INDICATION
     Route: 065
  3. GANFORT [Concomitant]
     Active Substance: BIMATOPROST\TIMOLOL
     Indication: PRODUCT USED FOR UNKNOWN INDICATION
     Route: 065
  4. WARFARIN [Concomitant]
     Active Substance: WARFARIN
     Indication: PRODUCT USED FOR UNKNOWN INDICATION
     Route: 065
  5. BISOPROLOL FUMARATE. [Concomitant]
     Active Substance: BISOPROLOL FUMARATE
     Indication: PRODUCT USED FOR UNKNOWN INDICATION
     Route: 065
  6. FUROSEMIDE SODIUM [Concomitant]
     Active Substance: FUROSEMIDE SODIUM
     Indication: PRODUCT USED FOR UNKNOWN INDICATION
     Route: 065
  7. MAXIDEX [Suspect]
     Active Substance: DEXAMETHASONE
     Indication: MACULAR TELANGIECTASIA
     Dosage: 8 GTT, UNK (ONE DROP IN EACH EYE.)
     Route: 047
     Dates: start: 20190523, end: 20190619
  8. CINACALCET HYDROCHLORIDE. [Concomitant]
     Active Substance: CINACALCET HYDROCHLORIDE
     Indication: PRODUCT USED FOR UNKNOWN INDICATION
     Route: 065

REACTIONS (1)
  - Corneal perforation [Recovered/Resolved with Sequelae]

NARRATIVE: CASE EVENT DATE: 20190619
